FAERS Safety Report 4960290-3 (Version None)
Quarter: 2006Q1

REPORT INFORMATION
  Report Type: 
  Country: None (occurrence: None)
  Receive Date: 20060328
  Receipt Date: 20060315
  Transmission Date: 20060701
  Serious: Yes (Hospitalization)
  Sender: FDA-Public Use
  Company Number: 2006040023

PATIENT
  Age: 24 Year
  Sex: Female

DRUGS (2)
  1. ZYRTEC [Suspect]
     Indication: HYPERSENSITIVITY
     Dosage: (1 IN 1 D) ORAL
     Route: 048
  2. MONTELUKAST [Concomitant]

REACTIONS (4)
  - ANGIONEUROTIC OEDEMA [None]
  - HEADACHE [None]
  - MALAISE [None]
  - REACTION TO DRUG EXCIPIENTS [None]
